FAERS Safety Report 7216267-0 (Version None)
Quarter: 2011Q1

REPORT INFORMATION
  Report Type: 
  Country: None (occurrence: None)
  Receive Date: 20110105
  Receipt Date: 20110105
  Transmission Date: 20110831
  Serious: No
  Sender: FDA-Public Use
  Company Number: None

PATIENT
  Age: 53 Year
  Sex: Female
  Weight: 90.7194 kg

DRUGS (1)
  1. IMIQUIMOD [Suspect]
     Indication: PRECANCEROUS SKIN LESION
     Dosage: 24 SINGLE USE PACKS  2X A WK  RUB ON SKIN
     Dates: start: 20100924, end: 20101215

REACTIONS (1)
  - DRUG INEFFECTIVE [None]
